FAERS Safety Report 5021325-5 (Version None)
Quarter: 2006Q2

REPORT INFORMATION
  Report Type: 
  Country: None (occurrence: None)
  Receive Date: 20060608
  Receipt Date: 20050623
  Transmission Date: 20061013
  Serious: No
  Sender: FDA-Public Use
  Company Number: US-BRISTOL-MYERS SQUIBB COMPANY-13014634

PATIENT
  Age: 70 Year
  Sex: Male
  Weight: 77 kg

DRUGS (3)
  1. CARBIDOPA AND LEVODOPA [Suspect]
     Indication: PARKINSON'S DISEASE
     Dosage: DOSAGE: 10MG/100MG
     Route: 048
  2. MOBIC [Concomitant]
  3. TOPROL-XL [Concomitant]

REACTIONS (2)
  - MUSCLE RIGIDITY [None]
  - TREMOR [None]
